FAERS Safety Report 20058256 (Version 4)
Quarter: 2022Q4

REPORT INFORMATION
  Report Type: Spontaneous
  Country: CO (occurrence: CO)
  Receive Date: 20211111
  Receipt Date: 20221024
  Transmission Date: 20230112
  Serious: Yes (Other)
  Sender: FDA-Public Use
  Company Number: CO-PFIZER INC-202101498607

PATIENT
  Sex: Male

DRUGS (1)
  1. GENOTROPIN [Suspect]
     Active Substance: SOMATROPIN
     Dosage: UNSPECIFIED FREQUENCY
     Route: 058
     Dates: start: 2017, end: 202106

REACTIONS (5)
  - Neoplasm malignant [Unknown]
  - Nail disorder [Unknown]
  - Endocrine disorder [Unknown]
  - Condition aggravated [Unknown]
  - Neoplasm [Unknown]

NARRATIVE: CASE EVENT DATE: 20210101
